FAERS Safety Report 10342438 (Version 2)
Quarter: 2014Q3

REPORT INFORMATION
  Report Type: Spontaneous
  Country: US (occurrence: US)
  Receive Date: 20140725
  Receipt Date: 20140811
  Transmission Date: 20150326
  Serious: Yes (Hospitalization)
  Sender: FDA-Public Use
  Company Number: US-BAYER-2014-110634

PATIENT
  Age: 30 Year
  Sex: Female
  Weight: 79.37 kg

DRUGS (2)
  1. MIRENA [Suspect]
     Active Substance: LEVONORGESTREL
     Indication: CONTRACEPTION
     Dosage: 20 MCG/24HR, CONT
     Route: 015
     Dates: start: 20100202, end: 20120823
  2. LO LOESTRIN FE [Concomitant]
     Active Substance: ETHINYL ESTRADIOL\NORETHINDRONE ACETATE

REACTIONS (9)
  - Device dislocation [None]
  - Syncope [None]
  - Abdominal pain lower [None]
  - Uterine perforation [None]
  - Injury [None]
  - Pain [None]
  - Pelvic pain [None]
  - Burning sensation [None]
  - Device issue [None]

NARRATIVE: CASE EVENT DATE: 2012
